FAERS Safety Report 5471059-8 (Version None)
Quarter: 2007Q3

REPORT INFORMATION
  Report Type: 
  Country: None (occurrence: None)
  Receive Date: 20070928
  Receipt Date: 20070313
  Transmission Date: 20080115
  Serious: No
  Sender: FDA-Public Use
  Company Number: A0641364A

PATIENT
  Age: 7 Year
  Sex: Female
  Weight: 24.1 kg

DRUGS (2)
  1. LAMICTAL [Suspect]
     Indication: BIPOLAR DISORDER
     Dosage: 10MG PER DAY
     Route: 048
  2. RISPERDAL [Concomitant]

REACTIONS (2)
  - RASH [None]
  - URTICARIA [None]
